FAERS Safety Report 8133775-9 (Version None)
Quarter: 2012Q1

REPORT INFORMATION
  Report Type: 
  Country: None (occurrence: None)
  Receive Date: 20120213
  Receipt Date: 20120213
  Transmission Date: 20120608
  Serious: Yes (Other)
  Sender: FDA-Public Use
  Company Number: None

PATIENT
  Sex: Female
  Weight: 91.625 kg

DRUGS (1)
  1. DICLOFENAC SODIUM [Suspect]

REACTIONS (3)
  - RASH [None]
  - CHEST DISCOMFORT [None]
  - DIARRHOEA [None]
